FAERS Safety Report 6919817-4 (Version None)
Quarter: 2010Q3

REPORT INFORMATION
  Report Type: 
  Country: None (occurrence: None)
  Receive Date: 20100810
  Receipt Date: 20100810
  Transmission Date: 20110219
  Serious: Yes (Hospitalization)
  Sender: FDA-Public Use
  Company Number: None

PATIENT
  Age: 53 Year
  Sex: Male
  Weight: 110.6777 kg

DRUGS (3)
  1. CITALOPRAM HYDROBROMIDE [Suspect]
     Indication: DEPRESSION
     Dosage: 40MG DAILY PO
     Route: 048
     Dates: start: 20090512, end: 20100119
  2. AMPHETAMINE AND DEXTROAMPHETAMINE SALTS [Suspect]
     Indication: DEPRESSION
     Dosage: 10MG DAILY PO ~1 YEAR -ON/OFF USE-
     Route: 048
  3. AMPHETAMINE AND DEXTROAMPHETAMINE SALTS [Suspect]
     Indication: DRUG RESISTANCE
     Dosage: 10MG DAILY PO ~1 YEAR -ON/OFF USE-
     Route: 048

REACTIONS (4)
  - HAEMOPTYSIS [None]
  - HYPERHIDROSIS [None]
  - MENTAL STATUS CHANGES [None]
  - SEROTONIN SYNDROME [None]
